FAERS Safety Report 22246473 (Version 1)
Quarter: 2023Q2

REPORT INFORMATION
  Report Type: Spontaneous
  Country: CA (occurrence: CA)
  Receive Date: 20230424
  Receipt Date: 20230424
  Transmission Date: 20230721
  Serious: Yes (Hospitalization)
  Sender: FDA-Public Use
  Company Number: CA-GLAXOSMITHKLINE-CA2023AMR011572

PATIENT

DRUGS (1)
  1. BENLYSTA [Suspect]
     Active Substance: BELIMUMAB
     Indication: Systemic lupus erythematosus
     Dosage: UNK
     Dates: end: 20230413

REACTIONS (11)
  - Hospitalisation [Unknown]
  - Fatigue [Unknown]
  - Blood creatine increased [Unknown]
  - Pain [Unknown]
  - Arthralgia [Unknown]
  - Mobility decreased [Unknown]
  - Fungal infection [Unknown]
  - Urinary tract infection [Unknown]
  - Disease recurrence [Unknown]
  - Product dose omission issue [Unknown]
  - Inappropriate schedule of product administration [Unknown]

NARRATIVE: CASE EVENT DATE: 20221201
